FAERS Safety Report 15651528 (Version 1)
Quarter: 2018Q4

REPORT INFORMATION
  Report Type: Report from Study
  Country: CA (occurrence: CA)
  Receive Date: 20181123
  Receipt Date: 20181123
  Transmission Date: 20190205
  Serious: Yes (Other)
  Sender: FDA-Public Use
  Company Number: CA-PFIZER INC-2018478405

PATIENT
  Age: 80 Year
  Sex: Female

DRUGS (7)
  1. XYREM [Suspect]
     Active Substance: SODIUM OXYBATE
     Dosage: 4.5 G, 3X/DAY
     Route: 048
  2. XYREM [Suspect]
     Active Substance: SODIUM OXYBATE
     Dosage: 4.5 G, 3X/DAY
     Route: 048
  3. XYREM [Suspect]
     Active Substance: SODIUM OXYBATE
     Dosage: 3 G, 3X/DAY
     Route: 048
  4. XYREM [Suspect]
     Active Substance: SODIUM OXYBATE
     Dosage: 6 G, 2X/DAY
     Route: 048
  5. MORPHINE SULFATE. [Suspect]
     Active Substance: MORPHINE SULFATE
     Dosage: UNK
     Route: 065
  6. XYREM [Suspect]
     Active Substance: SODIUM OXYBATE
     Indication: CATAPLEXY
     Dosage: 4.5 G, 2X/DAY
     Route: 048
  7. RITALIN [Concomitant]
     Active Substance: METHYLPHENIDATE HYDROCHLORIDE
     Dosage: UNK

REACTIONS (13)
  - Treatment noncompliance [Unknown]
  - Nausea [Unknown]
  - Dysphonia [Unknown]
  - Withdrawal syndrome [Unknown]
  - Tooth injury [Unknown]
  - Malaise [Unknown]
  - Weight decreased [Unknown]
  - Incorrect dose administered [Unknown]
  - Somnolence [Unknown]
  - Rib fracture [Unknown]
  - Fall [Unknown]
  - Extra dose administered [Unknown]
  - Scoliosis [Unknown]
